FAERS Safety Report 16984857 (Version 1)
Quarter: 2019Q4

REPORT INFORMATION
  Report Type: Spontaneous
  Country: US (occurrence: US)
  Receive Date: 20190917
  Receipt Date: 20190917
  Transmission Date: 20200122
  Serious: No
  Sender: FDA-Public Use
  Company Number: None

PATIENT
  Age: 63 Year
  Sex: Male

DRUGS (2)
  1. ONDANSETRON [Suspect]
     Active Substance: ONDANSETRON
     Indication: SURGERY
     Route: 042
     Dates: start: 20190823, end: 20190823
  2. ONDANSETRON [Suspect]
     Active Substance: ONDANSETRON
     Indication: SURGERY
     Route: 042
     Dates: start: 20190823, end: 20190823

REACTIONS (1)
  - Anaphylactic reaction [None]

NARRATIVE: CASE EVENT DATE: 20190823
